FAERS Safety Report 6220996-5 (Version None)
Quarter: 2009Q2

REPORT INFORMATION
  Report Type: 
  Country: None (occurrence: None)
  Receive Date: 20090610
  Receipt Date: 20090602
  Transmission Date: 20091009
  Serious: Yes (Hospitalization)
  Sender: FDA-Public Use
  Company Number: US-JNJFOC-20090600786

PATIENT
  Age: 66 Year
  Sex: Female

DRUGS (1)
  1. DOXIL [Suspect]
     Indication: ACCIDENTAL EXPOSURE
     Dosage: 60 MG/M2
     Route: 042

REACTIONS (2)
  - FEBRILE NEUTROPENIA [None]
  - WRONG DRUG ADMINISTERED [None]
